FAERS Safety Report 9536549 (Version 2)
Quarter: 2013Q3

REPORT INFORMATION
  Report Type: Spontaneous
  Country: US (occurrence: None)
  Receive Date: 20130510
  Receipt Date: 20130816
  Transmission Date: 20140515
  Serious: No
  Sender: FDA-Public Use
  Company Number: US-011391

PATIENT
  Age: 61 Year
  Sex: Female
  Weight: 48.08 kg

DRUGS (4)
  1. PICO-SALAX [Suspect]
     Indication: COLONOSCOPY
     Dosage: 1 PACKET MIXED WITH 5 OZ OF WATER ORAL 08APR2013 UNTO NOT CONTINUING  THERAPY DATES
     Route: 048
     Dates: start: 20130408
  2. PREVACID [Concomitant]
  3. ZANTAC [Concomitant]
  4. SYNTHROID [Concomitant]

REACTIONS (2)
  - Abdominal distension [None]
  - Abdominal pain [None]
